FAERS Safety Report 7526717-8 (Version None)
Quarter: 2011Q2

REPORT INFORMATION
  Report Type: 
  Country: None (occurrence: None)
  Receive Date: 20110606
  Receipt Date: 20110527
  Transmission Date: 20111010
  Serious: Yes (Death, Hospitalization, Other)
  Sender: FDA-Public Use
  Company Number: BR-SANOFI-AVENTIS-2011SA033777

PATIENT
  Age: 65 Year
  Sex: Male

DRUGS (8)
  1. NATURETTI [Concomitant]
     Indication: GASTROINTESTINAL DISORDER
     Route: 048
  2. PLANTABEN [Concomitant]
     Indication: GASTROINTESTINAL DISORDER
     Route: 048
  3. LANTUS [Suspect]
     Indication: TYPE 2 DIABETES MELLITUS
     Route: 058
     Dates: end: 20110306
  4. VITAMINS WITH MINERALS [Concomitant]
     Indication: VITAMIN SUPPLEMENTATION
     Route: 048
  5. AUTOPEN 24 [Suspect]
  6. ASPIRIN [Concomitant]
     Route: 048
     Dates: end: 20110301
  7. LOSARTAN POTASSIUM [Concomitant]
     Indication: HYPERTENSION
     Route: 048
     Dates: end: 20110301
  8. GLYBURIDE [Concomitant]
     Indication: TYPE 2 DIABETES MELLITUS
     Route: 048
     Dates: end: 20110301

REACTIONS (13)
  - GAIT DISTURBANCE [None]
  - FATIGUE [None]
  - BRONCHITIS [None]
  - ISCHAEMIC STROKE [None]
  - HYPERHIDROSIS [None]
  - PULMONARY OEDEMA [None]
  - CONSTIPATION [None]
  - PNEUMONIA [None]
  - NASOPHARYNGITIS [None]
  - PYREXIA [None]
  - HERNIA [None]
  - CARDIAC ARREST [None]
  - HYPOGLYCAEMIA [None]
